FAERS Safety Report 17338566 (Version 1)
Quarter: 2020Q1

REPORT INFORMATION
  Report Type: Spontaneous
  Country: DE (occurrence: DE)
  Receive Date: 20200129
  Receipt Date: 20200129
  Transmission Date: 20200409
  Serious: Yes (Other)
  Sender: FDA-Public Use
  Company Number: DE-SA-2019SA219531

PATIENT
  Age: 51 Year
  Sex: Female

DRUGS (6)
  1. AUBAGIO [Suspect]
     Active Substance: TERIFLUNOMIDE
     Indication: MULTIPLE SCLEROSIS
     Dosage: 1 DF
     Route: 048
     Dates: start: 20180120
  2. DECORTIN H [Concomitant]
     Active Substance: PREDNISOLONE
     Dosage: 20 MG, QOD
  3. DEKRISTOL [Concomitant]
     Active Substance: CHOLECALCIFEROL
     Indication: VITAMIN D DEFICIENCY
     Dosage: 20000 IU
     Route: 048
  4. URBASON [METHYLPREDNISOLONE] [Concomitant]
     Active Substance: METHYLPREDNISOLONE
     Route: 042
  5. PANTOPRAZOLE [Concomitant]
     Active Substance: PANTOPRAZOLE
     Indication: PROPHYLAXIS
  6. DECORTIN H [Concomitant]
     Active Substance: PREDNISOLONE
     Dosage: 100 MG

REACTIONS (14)
  - Multiple sclerosis [Unknown]
  - Neuralgia [Unknown]
  - Onychoclasis [Not Recovered/Not Resolved]
  - Dysdiadochokinesis [Unknown]
  - Fatigue [Unknown]
  - Peripheral swelling [Unknown]
  - Multiple sclerosis relapse [Unknown]
  - Restlessness [Not Recovered/Not Resolved]
  - Alopecia [Unknown]
  - Pulpitis dental [Recovering/Resolving]
  - Dry skin [Unknown]
  - Condition aggravated [Unknown]
  - Hypoaesthesia [Unknown]
  - Limb discomfort [Unknown]

NARRATIVE: CASE EVENT DATE: 2019
